FAERS Safety Report 8351135-2 (Version None)
Quarter: 2012Q2

REPORT INFORMATION
  Report Type: 
  Country: None (occurrence: None)
  Receive Date: 20120510
  Receipt Date: 20120503
  Transmission Date: 20120825
  Serious: Yes (Other)
  Sender: FDA-Public Use
  Company Number: GR-JNJFOC-20120504771

PATIENT
  Age: 30 Year
  Sex: Male

DRUGS (4)
  1. SIMPONI [Suspect]
     Indication: PSORIATIC ARTHROPATHY
     Route: 058
     Dates: start: 20120301
  2. SIMPONI [Suspect]
     Route: 058
     Dates: start: 20120127
  3. SIMPONI [Suspect]
     Route: 058
     Dates: start: 20120401
  4. METHOTREXATE [Concomitant]
     Indication: PSORIATIC ARTHROPATHY
     Dates: start: 20110101

REACTIONS (2)
  - EPISTAXIS [None]
  - HEPATIC ENZYME INCREASED [None]
